FAERS Safety Report 11388565 (Version 4)
Quarter: 2015Q3

REPORT INFORMATION
  Report Type: Report from Study
  Country: US (occurrence: US)
  Receive Date: 20150817
  Receipt Date: 20150921
  Transmission Date: 20151125
  Serious: Yes (Hospitalization, Other)
  Sender: FDA-Public Use
  Company Number: US-GILEAD-2015-0167634

PATIENT
  Age: 71 Year
  Sex: Female

DRUGS (2)
  1. IDELALISIB [Suspect]
     Active Substance: IDELALISIB
     Dosage: 150 MG, UNK
     Route: 048
     Dates: start: 20150427
  2. IDELALISIB [Suspect]
     Active Substance: IDELALISIB
     Indication: B-CELL LYMPHOMA
     Dosage: 150 MG, BID
     Route: 048
     Dates: start: 20150605, end: 20150826

REACTIONS (7)
  - Diarrhoea [Unknown]
  - Chills [Unknown]
  - Pyrexia [Unknown]
  - Herpes zoster [Unknown]
  - Diarrhoea [Recovering/Resolving]
  - Vomiting [Unknown]
  - Pyrexia [Unknown]

NARRATIVE: CASE EVENT DATE: 20150809
